FAERS Safety Report 7246124-5 (Version None)
Quarter: 2011Q1

REPORT INFORMATION
  Report Type: 
  Country: None (occurrence: None)
  Receive Date: 20110126
  Receipt Date: 20110119
  Transmission Date: 20110831
  Serious: Yes (Other)
  Sender: FDA-Public Use
  Company Number: A0908723A

PATIENT
  Sex: Female

DRUGS (1)
  1. PAXIL [Suspect]
     Indication: AFFECTIVE DISORDER
     Route: 048
     Dates: start: 20000601, end: 20020201

REACTIONS (5)
  - DRUG EXPOSURE DURING PREGNANCY [None]
  - AGGRESSION [None]
  - NEGATIVISM [None]
  - WEIGHT INCREASED [None]
  - ILL-DEFINED DISORDER [None]
